FAERS Safety Report 20215388 (Version 1)
Quarter: 2021Q4

REPORT INFORMATION
  Report Type: Spontaneous
  Country: CZ (occurrence: CZ)
  Receive Date: 20211222
  Receipt Date: 20211222
  Transmission Date: 20220303
  Serious: Yes (Other)
  Sender: FDA-Public Use
  Company Number: None

PATIENT
  Sex: Male

DRUGS (6)
  1. METOPROLOL SUCCINATE [Suspect]
     Active Substance: METOPROLOL SUCCINATE
     Dosage: (IN THE MORNING)
     Route: 048
  2. WARFARIN [Suspect]
     Active Substance: WARFARIN
     Route: 065
  3. METFORMIN [Suspect]
     Active Substance: METFORMIN HYDROCHLORIDE
     Dosage: BID
     Route: 065
  4. LINAGLIPTIN [Suspect]
     Active Substance: LINAGLIPTIN
     Dosage: (IN THE MORNING)
     Route: 065
  5. ATORVASTATIN [Suspect]
     Active Substance: ATORVASTATIN
     Dosage: (IN THE EVENING)
     Route: 065
  6. INDAPAMIDE\PERINDOPRIL ARGININE [Suspect]
     Active Substance: INDAPAMIDE\PERINDOPRIL ARGININE
     Dosage: (5/1.25 MG) 1 TABLET IN THE MORNING
     Route: 065

REACTIONS (15)
  - Melaena [Unknown]
  - Metabolic acidosis [Unknown]
  - Nephropathy [Unknown]
  - Diabetic nephropathy [Unknown]
  - Abdominal pain upper [Unknown]
  - Asthenia [Unknown]
  - Dyspnoea [Unknown]
  - Blood pressure decreased [Unknown]
  - Heart rate irregular [Unknown]
  - Anaemia [Unknown]
  - International normalised ratio increased [Unknown]
  - Proteinuria [Unknown]
  - Haematuria [Unknown]
  - Blood creatinine increased [Unknown]
  - Blood lactic acid increased [Unknown]

NARRATIVE: CASE EVENT DATE: 20201101
